FAERS Safety Report 11157023 (Version 3)
Quarter: 2015Q2

REPORT INFORMATION
  Report Type: Report from Study
  Country: GR (occurrence: GR)
  Receive Date: 20150602
  Receipt Date: 20150604
  Transmission Date: 20150821
  Serious: Yes (Death)
  Sender: FDA-Public Use
  Company Number: GR-ABBVIE-15P-066-1400158-00

PATIENT
  Sex: Male
  Weight: 71 kg

DRUGS (1)
  1. DUODOPA [Suspect]
     Active Substance: CARBIDOPA\LEVODOPA
     Indication: PARKINSON^S DISEASE
     Dosage: MORNING DOSE: 11.5 ML,CONTINUOUS RATE: 5.7 ML/H,EXTRA DOSE: 2.5 ML
     Route: 050
     Dates: start: 20141123, end: 20150526

REACTIONS (2)
  - Myocardial oedema [Fatal]
  - Pulmonary oedema [Fatal]

NARRATIVE: CASE EVENT DATE: 20150526
